FAERS Safety Report 17726268 (Version 1)
Quarter: 2020Q2

REPORT INFORMATION
  Report Type: Spontaneous
  Country: CA (occurrence: CA)
  Receive Date: 20200429
  Receipt Date: 20200429
  Transmission Date: 20200714
  Serious: Yes (Other)
  Sender: FDA-Public Use
  Company Number: CA-AUROBINDO-AUR-APL-2020-020712

PATIENT
  Age: 35 Year
  Sex: Male

DRUGS (10)
  1. LEVOMEPROMAZINE [Suspect]
     Active Substance: LEVOMEPROMAZINE
     Indication: POOR QUALITY SLEEP
     Dosage: UNK
     Route: 065
  2. LITHIUM CARBONATE. [Suspect]
     Active Substance: LITHIUM CARBONATE
     Indication: AFFECTIVE DISORDER
     Dosage: 900 MILLIGRAM, ONCE A DAY
     Route: 048
  3. OXAZEPAM. [Suspect]
     Active Substance: OXAZEPAM
     Indication: POOR QUALITY SLEEP
     Dosage: UNK
     Route: 065
  4. QUETIAPINE. [Suspect]
     Active Substance: QUETIAPINE
     Indication: POOR QUALITY SLEEP
     Dosage: UNK
     Route: 065
  5. ZOPICLONE [Suspect]
     Active Substance: ZOPICLONE
     Indication: POOR QUALITY SLEEP
     Dosage: UNK
     Route: 065
  6. CLONAZEPAM. [Suspect]
     Active Substance: CLONAZEPAM
     Indication: DYSTONIA
     Dosage: UNK
     Route: 065
  7. TEMAZEPAM. [Suspect]
     Active Substance: TEMAZEPAM
     Indication: POOR QUALITY SLEEP
     Dosage: UNK
     Route: 065
  8. BENZATROPINE [Suspect]
     Active Substance: BENZTROPINE
     Indication: DYSTONIA
     Dosage: UNK
     Route: 065
  9. VORTIOXETINE. [Concomitant]
     Active Substance: VORTIOXETINE
     Indication: ANTIDEPRESSANT THERAPY
     Dosage: 10 MILLIGRAM, ONCE A DAY
     Route: 048
  10. CLONAZEPAM. [Suspect]
     Active Substance: CLONAZEPAM
     Indication: POOR QUALITY SLEEP

REACTIONS (3)
  - Drug ineffective [Unknown]
  - Dystonia [Unknown]
  - Therapeutic product effect incomplete [Unknown]
